FAERS Safety Report 14823327 (Version 4)
Quarter: 2018Q3

REPORT INFORMATION
  Report Type: Spontaneous
  Country: US (occurrence: US)
  Receive Date: 20180427
  Receipt Date: 20180710
  Transmission Date: 20181010
  Serious: No
  Sender: FDA-Public Use
  Company Number: US-BIOGEN-2018BI00561461

PATIENT
  Sex: Female

DRUGS (2)
  1. AVONEX [Suspect]
     Active Substance: INTERFERON BETA-1A
     Indication: MULTIPLE SCLEROSIS
     Route: 065
     Dates: start: 20180309, end: 20180424
  2. AVONEX [Suspect]
     Active Substance: INTERFERON BETA-1A
     Route: 030

REACTIONS (9)
  - Skin lesion [Unknown]
  - Multiple sclerosis [Unknown]
  - Pain [Unknown]
  - Pruritus [Unknown]
  - Headache [Unknown]
  - Back pain [Unknown]
  - Drug ineffective [Unknown]
  - Pain in extremity [Unknown]
  - Memory impairment [Unknown]
